FAERS Safety Report 7210195-2 (Version None)
Quarter: 2011Q1

REPORT INFORMATION
  Report Type: 
  Country: None (occurrence: None)
  Receive Date: 20110105
  Receipt Date: 20101230
  Transmission Date: 20110831
  Serious: Yes (Other)
  Sender: FDA-Public Use
  Company Number: US-JNJFOC-20101005016

PATIENT
  Sex: Female

DRUGS (13)
  1. VITAMIN TAB [Concomitant]
  2. TRAMADOL [Concomitant]
     Indication: PAIN
  3. CELEBREX [Concomitant]
  4. CITRACAL PLUS [Concomitant]
  5. LEXAPRO [Concomitant]
  6. REMICADE [Suspect]
     Indication: RHEUMATOID ARTHRITIS
     Route: 042
  7. MEDROL [Suspect]
     Indication: ILL-DEFINED DISORDER
  8. SIMVASTATIN [Concomitant]
  9. FOLIC ACID [Concomitant]
  10. DIOVAN HCT [Concomitant]
  11. METOPROLOL TARTRATE [Concomitant]
  12. METHOTREXATE [Concomitant]
  13. NEXIUM [Concomitant]

REACTIONS (1)
  - WEIGHT INCREASED [None]
